APPROVED DRUG PRODUCT: ESTRADIOL
Active Ingredient: ESTRADIOL
Strength: 0.05MG/24HR
Dosage Form/Route: FILM, EXTENDED RELEASE;TRANSDERMAL
Application: A211396 | Product #003 | TE Code: AB3
Applicant: AMNEAL PHARMACEUTICALS LLC
Approved: Sep 28, 2020 | RLD: No | RS: No | Type: RX